FAERS Safety Report 8999515 (Version 1)
Quarter: 2013Q1

REPORT INFORMATION
  Report Type: Spontaneous
  Country: US (occurrence: US)
  Receive Date: 20130103
  Receipt Date: 20130103
  Transmission Date: 20140127
  Serious: Yes (Death, Life-Threatening, Other)
  Sender: FDA-Public Use
  Company Number: US-PFIZER INC-2011177661

PATIENT
  Age: 69 Year
  Sex: Male

DRUGS (6)
  1. METHOTREXATE SODIUM [Suspect]
     Indication: CHEMOTHERAPY
     Dosage: 3.5 G/M2, UNK
     Route: 042
  2. METHOTREXATE SODIUM [Suspect]
     Dosage: 12 MG
  3. CYTARABINE [Suspect]
     Indication: WALDENSTROM^S MACROGLOBULINAEMIA
     Dosage: TWO DOSES
  4. CYTARABINE [Suspect]
     Indication: LYMPHOPLASMACYTOID LYMPHOMA/IMMUNOCYTOMA
  5. RITUXIMAB [Suspect]
     Indication: CHEMOTHERAPY
     Dosage: 375 MG/M2, UNK
  6. BENDAMUSTINE [Suspect]
     Indication: CHEMOTHERAPY
     Dosage: 90 MG/M2
     Route: 042

REACTIONS (4)
  - Lung infection [Fatal]
  - Encephalopathy [Unknown]
  - Neurotoxicity [Unknown]
  - Procedural complication [Unknown]
